FAERS Safety Report 5856359-1 (Version None)
Quarter: 2008Q3

REPORT INFORMATION
  Report Type: 
  Country: None (occurrence: None)
  Receive Date: 20080825
  Receipt Date: 20080822
  Transmission Date: 20090109
  Serious: Yes (Other)
  Sender: FDA-Public Use
  Company Number: JP-BRISTOL-MYERS SQUIBB COMPANY-14305064

PATIENT
  Age: 74 Year
  Sex: Male

DRUGS (3)
  1. AMOXICILLIN [Suspect]
     Indication: HELICOBACTER INFECTION
  2. LANSOPRAZOLE [Suspect]
     Indication: HELICOBACTER INFECTION
  3. CLARITHROMYCIN [Suspect]
     Indication: HELICOBACTER INFECTION

REACTIONS (1)
  - ANAPLASTIC LARGE CELL LYMPHOMA T- AND NULL-CELL TYPES [None]
